FAERS Safety Report 8528813 (Version 5)
Quarter: 2013Q1

REPORT INFORMATION
  Report Type: Spontaneous
  Country: US (occurrence: US)
  Receive Date: 20120425
  Receipt Date: 20130116
  Transmission Date: 20140127
  Serious: Yes (Other)
  Sender: FDA-Public Use
  Company Number: US-PFIZER INC-2012099548

PATIENT
  Age: 57 Year
  Sex: Female
  Weight: 82.54 kg

DRUGS (2)
  1. LYRICA [Suspect]
     Indication: NEURALGIA
     Dosage: 100 MG, 3X/DAY
     Route: 048
     Dates: start: 2005
  2. NORVASC [Suspect]
     Indication: HYPERTENSION
     Dosage: 5 MG,DAILY
     Route: 048
     Dates: start: 201106

REACTIONS (3)
  - Blood pressure abnormal [Unknown]
  - Back disorder [Not Recovered/Not Resolved]
  - Oedema peripheral [Unknown]
